FAERS Safety Report 5566162-8 (Version None)
Quarter: 2007Q4

REPORT INFORMATION
  Report Type: 
  Country: None (occurrence: None)
  Receive Date: 20071219
  Receipt Date: 20070523
  Transmission Date: 20080405
  Serious: No
  Sender: FDA-Public Use
  Company Number: US-KINGPHARMUSA00001-K200700640

PATIENT

DRUGS (6)
  1. APLISOL [Suspect]
     Indication: TUBERCULIN TEST
     Dosage: .5 ML, SINGLE
     Route: 030
     Dates: start: 20070523, end: 20070523
  2. LIPITOR [Concomitant]
     Indication: BLOOD CHOLESTEROL INCREASED
     Route: 048
  3. PREVACID [Concomitant]
     Indication: GASTROOESOPHAGEAL REFLUX DISEASE
     Route: 048
  4. ZOLOFT [Concomitant]
     Indication: ANTIDEPRESSANT THERAPY
     Route: 048
  5. BIRTH CONTROL [Concomitant]
     Indication: ORAL CONTRACEPTION
     Route: 048
  6. ALLERGY MEDICINE [Concomitant]
     Indication: HYPERSENSITIVITY
     Dosage: UNK, PRN
     Route: 048

REACTIONS (3)
  - INCORRECT DOSE ADMINISTERED [None]
  - INCORRECT ROUTE OF DRUG ADMINISTRATION [None]
  - NO ADVERSE DRUG REACTION [None]
